FAERS Safety Report 8384890 (Version 5)
Quarter: 2012Q4

REPORT INFORMATION
  Report Type: 
  Country: US (occurrence: US)
  Receive Date: 20120202
  Receipt Date: 20121206
  Transmission Date: 20130627
  Serious: Yes (Other)
  Sender: FDA-Public Use
  Company Number: US-PFIZER INC-2012025826

PATIENT
  Age: 62 Year
  Sex: Female
  Weight: 77.1 kg

DRUGS (9)
  1. CADUET [Suspect]
     Indication: BLOOD PRESSURE HIGH
     Dosage: 5mg / 10 mg, daily
  2. CADUET [Suspect]
     Dosage: 5 mg / 20 mg, daily
  3. CELEBREX [Suspect]
     Indication: PLANTAR FASCIITIS
     Dosage: 200 mg, daily
     Dates: start: 201210
  4. CELEBREX [Suspect]
     Indication: WALKING DIFFICULTY
  5. VALIUM [Concomitant]
     Indication: HYPERACTIVE
     Dosage: 5 mg, 2x/day
  6. LASIX [Concomitant]
     Indication: BLOOD PRESSURE HIGH
     Dosage: 40 mg, daily
  7. POTASSIUM [Concomitant]
     Indication: POTASSIUM LOW
     Dosage: 8 mEq, 2x/day
     Route: 048
  8. POTASSIUM [Concomitant]
     Dosage: 16 mEq, 2x/day
     Route: 048
  9. PARAFON FORTE DSC [Concomitant]
     Dosage: UNK
     Route: 048

REACTIONS (7)
  - Surgery [Unknown]
  - Nasopharyngitis [Unknown]
  - Oropharyngeal pain [Unknown]
  - Influenza [Recovering/Resolving]
  - Malaise [Recovering/Resolving]
  - Speech disorder [Unknown]
  - Cough [Unknown]
